FAERS Safety Report 14190330 (Version 1)
Quarter: 2017Q4

REPORT INFORMATION
  Report Type: Report from Study
  Country: IE (occurrence: IE)
  Receive Date: 20171115
  Receipt Date: 20171115
  Transmission Date: 20180321
  Serious: Yes (Other)
  Sender: FDA-Public Use
  Company Number: IE-JNJFOC-20171115328

PATIENT
  Age: 67 Year
  Sex: Male

DRUGS (5)
  1. EPROSARTAN [Concomitant]
     Active Substance: EPROSARTAN
     Route: 065
  2. BISPROL [Concomitant]
     Route: 065
  3. STELARA [Suspect]
     Active Substance: USTEKINUMAB
     Indication: PSORIATIC ARTHROPATHY
     Route: 058
     Dates: start: 20160831
  4. NUPRIN [Concomitant]
     Active Substance: IBUPROFEN
     Route: 065
  5. BURINEX [Concomitant]
     Active Substance: BUMETANIDE
     Route: 065

REACTIONS (1)
  - Lower respiratory tract infection [Not Recovered/Not Resolved]

NARRATIVE: CASE EVENT DATE: 20170714
